FAERS Safety Report 7562839-3 (Version None)
Quarter: 2011Q2

REPORT INFORMATION
  Report Type: 
  Country: None (occurrence: None)
  Receive Date: 20110622
  Receipt Date: 20110615
  Transmission Date: 20111010
  Serious: Yes (Death)
  Sender: FDA-Public Use
  Company Number: AU-JNJFOC-20110309893

PATIENT
  Age: 50 Year
  Sex: Male

DRUGS (1)
  1. KETOCONAZOLE [Suspect]
     Indication: HISTOPLASMOSIS
     Route: 065

REACTIONS (1)
  - HISTOPLASMOSIS [None]
